FAERS Safety Report 7244227-2 (Version None)
Quarter: 2011Q1

REPORT INFORMATION
  Report Type: 
  Country: None (occurrence: None)
  Receive Date: 20110125
  Receipt Date: 20110121
  Transmission Date: 20110831
  Serious: Yes (Other)
  Sender: FDA-Public Use
  Company Number: JP-PFIZER INC-2010156279

PATIENT
  Age: 75 Year
  Sex: Male

DRUGS (2)
  1. SALAZOPYRIN [Suspect]
     Dosage: 1000 MG PER DAY
     Route: 054
     Dates: start: 20101013
  2. SALAZOPYRIN [Suspect]
     Indication: GASTROENTERITIS RADIATION
     Dosage: 1500 MG PER DAY
     Dates: start: 20101013

REACTIONS (1)
  - FEBRILE NEUTROPENIA [None]
